FAERS Safety Report 20945513 (Version 8)
Quarter: 2025Q3

REPORT INFORMATION
  Report Type: Spontaneous
  Country: IN (occurrence: IN)
  Receive Date: 20220610
  Receipt Date: 20250912
  Transmission Date: 20251021
  Serious: Yes (Other)
  Sender: PFIZER
  Company Number: IN-PFIZER INC-2018046711

PATIENT
  Age: 49 Year
  Sex: Female
  Weight: 71 kg

DRUGS (27)
  1. CRIZOTINIB [Suspect]
     Active Substance: CRIZOTINIB
     Indication: Lung adenocarcinoma stage IV
     Dosage: 250 MG, 2X/DAY
     Route: 048
     Dates: start: 20180115
  2. CRIZOTINIB [Suspect]
     Active Substance: CRIZOTINIB
     Dosage: 250 MG, 2X/DAY
     Route: 048
     Dates: start: 20190304, end: 2019
  3. CRIZOTINIB [Suspect]
     Active Substance: CRIZOTINIB
     Dosage: 200 MG, 2X/DAY
     Route: 048
     Dates: start: 2019
  4. CRIZOTINIB [Suspect]
     Active Substance: CRIZOTINIB
     Dosage: 8AM AND 8PM
     Route: 048
     Dates: start: 20200415
  5. CRIZOTINIB [Suspect]
     Active Substance: CRIZOTINIB
     Dosage: 8:00 AM AND 8:00 PM
     Route: 048
     Dates: start: 20200818
  6. CRIZOTINIB [Suspect]
     Active Substance: CRIZOTINIB
     Dosage: 8:00 AM AND 8:00 PM
     Route: 048
     Dates: start: 20201222
  7. CRIZOTINIB [Suspect]
     Active Substance: CRIZOTINIB
     Dosage: 8:00 AM AND 8:00 PM
     Route: 048
     Dates: start: 20210302
  8. CRIZOTINIB [Suspect]
     Active Substance: CRIZOTINIB
     Dosage: 8:00 AM AND 8:00 PM
     Dates: start: 20230719
  9. CRIZOTINIB [Suspect]
     Active Substance: CRIZOTINIB
     Dosage: 250 MG, 2X/DAY, 8:00 AM AND 8:00 PM
     Route: 048
  10. CRIZOTINIB [Suspect]
     Active Substance: CRIZOTINIB
     Dosage: 200 MG, 2X/DAY 8:00AM AND 8:00 PM
     Dates: start: 20240820
  11. DUPHALAC [Concomitant]
     Active Substance: LACTULOSE
     Indication: Constipation
     Dosage: 450 ML, 1X/DAY, (AT BEDTIME SOS IN CASE OF CONSTIPATION)
     Dates: start: 20190304
  12. DUPHALAC [Concomitant]
     Active Substance: LACTULOSE
     Dosage: 10 ML, 1X/DAY (AT BEDTIME SOS IN CASE OF CONSTIPATION)
     Dates: start: 20200415
  13. DUPHALAC [Concomitant]
     Active Substance: LACTULOSE
     Dosage: 10 ML, 1X/DAY (AT BEDTIME SOS IN CASE OF CONSTIPATION)
     Dates: start: 20200818
  14. DUPHALAC [Concomitant]
     Active Substance: LACTULOSE
     Dosage: 10 ML, 1X/DAY (AT BEDTIME SOS IN CASE OF CONSTIPATION)
     Dates: start: 20201222
  15. DUPHALAC [Concomitant]
     Active Substance: LACTULOSE
     Dosage: 10 ML, 1X/DAY (AT BEDTIME SOS IN CASE OF CONSTIPATION)
     Dates: start: 20210302
  16. DUPHALAC [Concomitant]
     Active Substance: LACTULOSE
     Dosage: AT BEDTIME SOS IN CASE OF CONSTIPATION
     Dates: start: 20230719
  17. DUPHALAC [Concomitant]
     Active Substance: LACTULOSE
     Dosage: 450 ML, 1X/DAY AT BED TIME SOS
     Dates: start: 20240820
  18. PAN [Concomitant]
     Dosage: 40 MG, 1X/DAY
     Dates: start: 20190403
  19. PAN [Concomitant]
     Dosage: 40 MG, 1X/DAY
     Dates: start: 20200415
  20. PAN [Concomitant]
     Dosage: 40 MG, 1X/DAY
     Dates: start: 20200818
  21. PAN [Concomitant]
     Dosage: 40 MG, 1X/DAY
     Dates: start: 20201222
  22. PAN [Concomitant]
     Dosage: 40 MG, 1X/DAY
     Dates: start: 20210302
  23. PAN [Concomitant]
     Dosage: 40 MG, 1X/DAY
     Dates: start: 20230719
  24. PAN [Concomitant]
     Dosage: 40 MG, 1X/DAY
     Dates: start: 20240820
  25. TAZLOC-40 [Concomitant]
     Indication: Hypertension
  26. COVID-19 VACCINE [Concomitant]
  27. COVID-19 VACCINE [Concomitant]

REACTIONS (21)
  - Interstitial lung disease [Unknown]
  - Electrocardiogram QT prolonged [Unknown]
  - Body mass index increased [Unknown]
  - Lung adenocarcinoma recurrent [Unknown]
  - Neuropathy peripheral [Recovering/Resolving]
  - Peripheral swelling [Unknown]
  - Hepatic cyst [Unknown]
  - Depression [Not Recovered/Not Resolved]
  - Blood pressure decreased [Unknown]
  - COVID-19 [Recovered/Resolved]
  - Pain [Unknown]
  - Vomiting [Unknown]
  - Tension [Not Recovered/Not Resolved]
  - Blood pressure increased [Unknown]
  - Atelectasis [Unknown]
  - Sinus bradycardia [Unknown]
  - Weight increased [Unknown]
  - Body temperature abnormal [Unknown]
  - Pulmonary mass [Unknown]
  - Renal cyst [Unknown]
  - Product use issue [Unknown]

NARRATIVE: CASE EVENT DATE: 20200801
